FAERS Safety Report 16718331 (Version 2)
Quarter: 2019Q3

REPORT INFORMATION
  Report Type: Report from Study
  Country: US (occurrence: US)
  Receive Date: 20190820
  Receipt Date: 20190830
  Transmission Date: 20191005
  Serious: Yes (Hospitalization, Other)
  Sender: FDA-Public Use
  Company Number: US-ROCHE-2289061

PATIENT
  Sex: Male
  Weight: 70.4 kg

DRUGS (1)
  1. PIRFENIDONE. [Suspect]
     Active Substance: PIRFENIDONE
     Indication: NON-SMALL CELL LUNG CANCER
     Dosage: DOSE ESCALATION: LEVEL 1:ONE CAPSULE (TOTAL DAILY DOSE 801 MG); LEVEL 2: TWO CAPSULES (TOTAL DAILY D
     Route: 048

REACTIONS (3)
  - Abdominal pain [Recovered/Resolved with Sequelae]
  - Anaemia [Recovered/Resolved with Sequelae]
  - Abdominal pain upper [Unknown]
